FAERS Safety Report 11359258 (Version 3)
Quarter: 2015Q4

REPORT INFORMATION
  Report Type: Spontaneous
  Country: JP (occurrence: JP)
  Receive Date: 20150807
  Receipt Date: 20151211
  Transmission Date: 20160304
  Serious: Yes (Death, Hospitalization)
  Sender: FDA-Public Use
  Company Number: JP-B.I. PHARMACEUTICALS,INC./RIDGEFIELD-2015-BI-43055NB

PATIENT
  Age: 73 Year
  Sex: Female
  Weight: 33 kg

DRUGS (1)
  1. GILOTRIF [Suspect]
     Active Substance: AFATINIB
     Indication: LUNG ADENOCARCINOMA
     Route: 065
     Dates: start: 201503, end: 20150415

REACTIONS (2)
  - Cerebral infarction [Fatal]
  - Stomatitis [Unknown]

NARRATIVE: CASE EVENT DATE: 20150311
